FAERS Safety Report 22657477 (Version 1)
Quarter: 2023Q2

REPORT INFORMATION
  Report Type: Spontaneous
  Country: US (occurrence: US)
  Receive Date: 20230630
  Receipt Date: 20230630
  Transmission Date: 20230722
  Serious: No
  Sender: FDA-Public Use
  Company Number: US-dreddys-SPO/USA/23/0165168

PATIENT
  Age: 23 Year

DRUGS (3)
  1. ACCUTANE [Suspect]
     Active Substance: ISOTRETINOIN
     Indication: Product used for unknown indication
     Dosage: RMA ISSUE DATE:09-DECEMBER-2022,02:58:59 PM
  2. ACCUTANE [Suspect]
     Active Substance: ISOTRETINOIN
     Dosage: RMA ISSUE DATE:16-JANUARY-2023,02:14:41 PM, 14-FEBRUARY-2023,12:27:49 PM
  3. ACCUTANE [Suspect]
     Active Substance: ISOTRETINOIN
     Dosage: RMA ISSUE DATE:21-MARCH-2023,12:13:29 PM

REACTIONS (1)
  - Erythema [Unknown]
